FAERS Safety Report 6403574-4 (Version None)
Quarter: 2009Q4

REPORT INFORMATION
  Report Type: 
  Country: None (occurrence: None)
  Receive Date: 20091016
  Receipt Date: 20091009
  Transmission Date: 20100525
  Serious: Yes (Other)
  Sender: FDA-Public Use
  Company Number: US-JNJFOC-20091000201

PATIENT
  Age: 4 Year
  Sex: Male
  Weight: 15.88 kg

DRUGS (4)
  1. CHILDREN'S TYLENOL LIQUID DYE-FREE CHERRY [Suspect]
     Route: 048
     Dates: start: 20090710, end: 20090712
  2. CHILDREN'S TYLENOL LIQUID DYE-FREE CHERRY [Suspect]
     Indication: RHINORRHOEA
     Route: 048
     Dates: start: 20090710, end: 20090712
  3. ZONEGRAN [Concomitant]
     Indication: CONVULSION
  4. POLYCITRA [Concomitant]
     Indication: ACID BASE BALANCE

REACTIONS (3)
  - CONDITION AGGRAVATED [None]
  - PYREXIA [None]
  - TRANSMISSION OF AN INFECTIOUS AGENT VIA A MEDICINAL PRODUCT [None]
